FAERS Safety Report 4283669-4 (Version None)
Quarter: 2004Q1

REPORT INFORMATION
  Report Type: 
  Country: None (occurrence: None)
  Receive Date: 20040129
  Receipt Date: 20040129
  Transmission Date: 20041129
  Serious: Yes (Hospitalization)
  Sender: FDA-Public Use
  Company Number: None

PATIENT
  Age: 54 Year
  Sex: Female
  Weight: 109.1 kg

DRUGS (15)
  1. FUROSEMIDE [Suspect]
     Indication: CARDIAC FAILURE CONGESTIVE
     Dosage: 20 MG QD / 200 QD
  2. LISINOPRIL [Suspect]
     Indication: CARDIAC FAILURE CONGESTIVE
     Dosage: 20 MG BID / 0.2 TID
  3. CELEBREX [Suspect]
  4. CLONIDINE [Suspect]
  5. PROTONIX [Concomitant]
  6. WARFARIN SODIUM [Concomitant]
  7. ZOCOR [Concomitant]
  8. ROXICET [Concomitant]
  9. REMERON [Concomitant]
  10. TRAZODONE HCL [Concomitant]
  11. GLUCOTROL XL [Concomitant]
  12. NITRO OINT [Concomitant]
  13. ALBUTEROL [Concomitant]
  14. FLOVENT MDI [Concomitant]
  15. CARISOPRODOL [Concomitant]

REACTIONS (4)
  - ANOREXIA [None]
  - ASTHENIA [None]
  - DYSPNOEA [None]
  - RENAL FAILURE ACUTE [None]
